FAERS Safety Report 6988692-4 (Version None)
Quarter: 2010Q3

REPORT INFORMATION
  Report Type: 
  Country: None (occurrence: None)
  Receive Date: 20100916
  Receipt Date: 20100909
  Transmission Date: 20110219
  Serious: Yes (Death, Other)
  Sender: FDA-Public Use
  Company Number: DE-ELI_LILLY_AND_COMPANY-DE201009002318

PATIENT
  Age: 68 Year
  Sex: Female

DRUGS (4)
  1. HUMULIN N [Suspect]
     Route: 058
  2. HUMALOG [Concomitant]
     Route: 058
  3. CYMBALTA [Concomitant]
  4. LYRICA [Concomitant]

REACTIONS (2)
  - DEATH [None]
  - NEOPLASM MALIGNANT [None]
